FAERS Safety Report 15221722 (Version 2)
Quarter: 2018Q4

REPORT INFORMATION
  Report Type: Spontaneous
  Country: US (occurrence: US)
  Receive Date: 20180731
  Receipt Date: 20181211
  Transmission Date: 20190204
  Serious: No
  Sender: FDA-Public Use
  Company Number: US-PFIZER INC-2018308020

PATIENT
  Age: 73 Year
  Sex: Female

DRUGS (1)
  1. EUCRISA [Suspect]
     Active Substance: CRISABOROLE
     Indication: DERMATITIS
     Dosage: UNK, 2X/DAY [APPLY SMALL AMOUNT TO ANKLE]
     Route: 061
     Dates: start: 20180702

REACTIONS (1)
  - Drug ineffective [Unknown]
